FAERS Safety Report 17814995 (Version 2)
Quarter: 2020Q3

REPORT INFORMATION
  Report Type: Spontaneous
  Country: DE (occurrence: DE)
  Receive Date: 20200522
  Receipt Date: 20200708
  Transmission Date: 20201102
  Serious: Yes (Hospitalization, Other)
  Sender: FDA-Public Use
  Company Number: DE-SUN PHARMACEUTICAL INDUSTRIES LTD-2020RR-248022

PATIENT
  Age: 67 Year
  Sex: Male

DRUGS (2)
  1. ILUMETRI 100 MG, INJEKTIONSL?SUNG [Suspect]
     Active Substance: TILDRAKIZUMAB
     Indication: PSORIASIS
     Dosage: 100 MILLIGRAM, FIRST INJECTION
     Route: 065
     Dates: start: 20200120
  2. ILUMETRI 100 MG, INJEKTIONSL?SUNG [Suspect]
     Active Substance: TILDRAKIZUMAB
     Dosage: 100 MILLIGRAM, SECOND INJECTION
     Route: 065
     Dates: start: 20200217

REACTIONS (1)
  - Cerebrovascular accident [Recovered/Resolved]

NARRATIVE: CASE EVENT DATE: 20200430
